FAERS Safety Report 21519256 (Version 1)
Quarter: 2022Q4

REPORT INFORMATION
  Report Type: Spontaneous
  Country: US (occurrence: US)
  Receive Date: 20221028
  Receipt Date: 20221028
  Transmission Date: 20230113
  Serious: No
  Sender: FDA-Public Use
  Company Number: US-BRISTOL-MYERS SQUIBB COMPANY-2022-127937

PATIENT
  Age: 69 Year
  Sex: Male
  Weight: 93.89 kg

DRUGS (1)
  1. POMALYST [Suspect]
     Active Substance: POMALIDOMIDE
     Indication: Plasma cell myeloma
     Dosage: FREQ: D 1-21 Q 28 DAYS
     Route: 048
     Dates: start: 20200916

REACTIONS (1)
  - Glycosylated haemoglobin increased [Not Recovered/Not Resolved]
